FAERS Safety Report 6450955-9 (Version None)
Quarter: 2009Q4

REPORT INFORMATION
  Report Type: 
  Country: None (occurrence: None)
  Receive Date: 20091123
  Receipt Date: 20091116
  Transmission Date: 20100525
  Serious: Yes (Other)
  Sender: FDA-Public Use
  Company Number: A0818234A

PATIENT
  Sex: Male
  Weight: 75 kg

DRUGS (3)
  1. SERETIDE [Suspect]
     Indication: EMPHYSEMA
     Dosage: 1PUFF TWICE PER DAY
     Route: 055
     Dates: start: 20040101
  2. SPIRIVA [Concomitant]
     Dosage: 1PUFF TWICE PER DAY
     Route: 055
     Dates: start: 20040101
  3. EXELON [Concomitant]
     Dosage: 1TAB PER DAY
     Route: 048
     Dates: start: 20050101

REACTIONS (1)
  - ISCHAEMIC STROKE [None]
